FAERS Safety Report 4978304-3 (Version None)
Quarter: 2006Q2

REPORT INFORMATION
  Report Type: 
  Country: None (occurrence: None)
  Receive Date: 20060417
  Receipt Date: 20060403
  Transmission Date: 20061013
  Serious: Yes (Hospitalization, Other)
  Sender: FDA-Public Use
  Company Number: 223722

PATIENT
  Sex: Female
  Weight: 65 kg

DRUGS (5)
  1. AVASTIN [Suspect]
     Indication: ADENOCARCINOMA PANCREAS
     Dosage: 650 MG, INTRAVENOUS
     Route: 042
     Dates: start: 20050824
  2. GEMCITABINE [Suspect]
     Indication: ADENOCARCINOMA PANCREAS
     Dosage: 1700 MG, INTRAVENOUS
     Route: 042
     Dates: start: 20050824
  3. OXALIPLATIN (OXALIPLATIN) [Suspect]
     Indication: ADENOCARCINOMA PANCREAS
     Dosage: 170 MG, INTRAVENOUS
     Route: 042
     Dates: start: 20050824
  4. DILAUDID [Concomitant]
  5. MS CONTIN [Concomitant]

REACTIONS (3)
  - ANOREXIA [None]
  - GASTROINTESTINAL HAEMORRHAGE [None]
  - HAEMOGLOBIN DECREASED [None]
